FAERS Safety Report 9646726 (Version 2)
Quarter: 2013Q4

REPORT INFORMATION
  Report Type: Spontaneous
  Country: US (occurrence: US)
  Receive Date: 20131027
  Receipt Date: 20131027
  Transmission Date: 20140711
  Serious: Yes (Death)
  Sender: FDA-Public Use
  Company Number: US-NAPPMUNDI-USA-2009-0041066

PATIENT
  Age: 32 Year
  Sex: Female
  Weight: 195.92 kg

DRUGS (4)
  1. OXYCODONE HYDROCHLORIDE (SIMILAR TO NDA 20-553) [Suspect]
     Indication: NEURALGIA
     Dosage: UNK
     Route: 048
     Dates: start: 2008, end: 2008
  2. METHADONE [Suspect]
     Indication: NEURALGIA
     Dosage: 10 MG, Q6H
     Route: 048
     Dates: start: 2008
  3. TOPIRAMATE [Suspect]
     Indication: PRODUCT USED FOR UNKNOWN INDICATION
  4. PROMETHAZINE [Suspect]
     Indication: PRODUCT USED FOR UNKNOWN INDICATION

REACTIONS (1)
  - Accidental overdose [Fatal]
